FAERS Safety Report 19357523 (Version 2)
Quarter: 2021Q2

REPORT INFORMATION
  Report Type: Spontaneous
  Country: US (occurrence: US)
  Receive Date: 20210601
  Receipt Date: 20210608
  Transmission Date: 20210717
  Serious: Yes (Other)
  Sender: FDA-Public Use
  Company Number: US-GW PHARMA-202105USGW02602

PATIENT

DRUGS (1)
  1. EPIDIOLEX [Suspect]
     Active Substance: CANNABIDIOL
     Indication: EPILEPSY
     Dosage: 14.03 MG/KG/DAY, 350 MILLIGRAM, BID
     Route: 048
     Dates: start: 202003

REACTIONS (3)
  - Seizure [Unknown]
  - Liquid product physical issue [Unknown]
  - Poor quality product administered [Unknown]
